FAERS Safety Report 6200654-3 (Version None)
Quarter: 2009Q2

REPORT INFORMATION
  Report Type: 
  Country: None (occurrence: None)
  Receive Date: 20090522
  Receipt Date: 20090520
  Transmission Date: 20091009
  Serious: Yes (Death, Life-Threatening, Hospitalization, Other)
  Sender: FDA-Public Use
  Company Number: US-GENENTECH-283555

PATIENT
  Age: 51 Year
  Sex: Male
  Weight: 82 kg

DRUGS (3)
  1. BEVACIZUMAB [Suspect]
     Indication: PANCREATIC CARCINOMA METASTATIC
     Dosage: 710 MG, Q2W
     Route: 042
     Dates: start: 20071025
  2. GEMCITABINE [Concomitant]
     Indication: PANCREATIC CARCINOMA
     Dosage: UNK
     Dates: start: 20071025
  3. DOCETAXEL [Concomitant]
     Indication: PANCREATIC CARCINOMA

REACTIONS (4)
  - ANAEMIA [None]
  - BACTERAEMIA [None]
  - DEATH [None]
  - LIVER ABSCESS [None]
